FAERS Safety Report 4841544-8 (Version None)
Quarter: 2005Q4

REPORT INFORMATION
  Report Type: 
  Country: None (occurrence: None)
  Receive Date: 20051130
  Receipt Date: 20050819
  Transmission Date: 20060501
  Serious: No
  Sender: FDA-Public Use
  Company Number: US-GLAXOSMITHKLINE-A0570953A

PATIENT
  Age: 56 Year
  Sex: Female

DRUGS (4)
  1. WELLBUTRIN XL [Suspect]
     Indication: DEPRESSION
     Dosage: 150MG PER DAY
     Route: 048
     Dates: start: 20050803
  2. TRAZODONE [Concomitant]
  3. BUSPAR [Concomitant]
  4. VITAMINS [Concomitant]

REACTIONS (2)
  - DRY MOUTH [None]
  - TREMOR [None]
